FAERS Safety Report 7174472-6 (Version None)
Quarter: 2010Q4

REPORT INFORMATION
  Report Type: 
  Country: None (occurrence: None)
  Receive Date: 20101219
  Receipt Date: 20100329
  Transmission Date: 20110411
  Serious: No
  Sender: FDA-Public Use
  Company Number: US-AMGEN-KDL402585

PATIENT

DRUGS (12)
  1. ENBREL [Suspect]
     Indication: PRODUCT USED FOR UNKNOWN INDICATION
     Dosage: 50 MG, QWK
     Route: 058
  2. VALSARTAN/HYDROCHLOROTHIAZIDE [Concomitant]
     Dosage: 25 MG, UNK
  3. OMEPRAZOLE [Concomitant]
     Dosage: 40 MG, UNK
  4. ASPIRIN [Concomitant]
     Dosage: 325 MG, UNK
  5. FOLIC ACID [Concomitant]
     Dosage: 400 A?G, UNK
  6. MULTI-VITAMINS [Concomitant]
     Dosage: UNK UNK, UNK
  7. YEAST DRIED [Concomitant]
     Dosage: UNK UNK, UNK
  8. COENZYME Q10 [Concomitant]
     Dosage: 100 MG, UNK
  9. VITAMIN B COMPLEX [Concomitant]
     Dosage: UNK UNK, UNK
  10. LOVAZA [Concomitant]
     Dosage: UNK UNK, UNK
  11. CYANOCOBALAMIN [Concomitant]
     Dosage: 5000 A?G, UNK
  12. TUMERIC [Concomitant]
     Dosage: UNK UNK, UNK

REACTIONS (1)
  - HAND FRACTURE [None]
